FAERS Safety Report 9306983 (Version 1)
Quarter: 2013Q2

REPORT INFORMATION
  Report Type: Spontaneous
  Country: US (occurrence: US)
  Receive Date: 20130523
  Receipt Date: 20130523
  Transmission Date: 20140414
  Serious: No
  Sender: FDA-Public Use
  Company Number: US-B.I. PHARMACEUTICALS,INC./RIDGEFIELD-2013-BI-14311BP

PATIENT
  Age: 63 Year
  Sex: Male
  Weight: 127 kg

DRUGS (4)
  1. SPIRIVA [Suspect]
     Indication: CHRONIC OBSTRUCTIVE PULMONARY DISEASE
     Dosage: 18 MCG
     Route: 055
     Dates: start: 201304
  2. LISINOPRIL/HCTZ [Concomitant]
     Indication: HYPERTENSION
     Dosage: STRENGTH: 20 MG/12.5MG; DAILY DOSE: 20 MG/12.5 MG
     Route: 048
     Dates: start: 1998
  3. ACYCLOVIR [Concomitant]
     Indication: HERPES OPHTHALMIC
     Dosage: 200 MG
     Route: 048
     Dates: start: 2008
  4. SYMBICORT [Concomitant]
     Indication: CHRONIC OBSTRUCTIVE PULMONARY DISEASE
     Dosage: 320 MG
     Route: 055
     Dates: start: 2012

REACTIONS (3)
  - Herpes ophthalmic [Not Recovered/Not Resolved]
  - Urinary incontinence [Not Recovered/Not Resolved]
  - Visual impairment [Not Recovered/Not Resolved]
